FAERS Safety Report 4567554-6 (Version None)
Quarter: 2005Q1

REPORT INFORMATION
  Report Type: 
  Country: None (occurrence: None)
  Receive Date: 20050127
  Receipt Date: 20050120
  Transmission Date: 20050727
  Serious: Yes (Hospitalization)
  Sender: FDA-Public Use
  Company Number: K200500087

PATIENT
  Age: 24 Year
  Sex: Female

DRUGS (1)
  1. NORDETTE-21 [Suspect]
     Indication: CONTRACEPTION
     Dosage: 1 TABLET, QD 1 WK NO TX PER MON, ORAL
     Route: 048
     Dates: start: 19820101, end: 19930101

REACTIONS (3)
  - PLEURAL EFFUSION [None]
  - PULMONARY THROMBOSIS [None]
  - TOTAL LUNG CAPACITY DECREASED [None]
